FAERS Safety Report 4266865-1 (Version None)
Quarter: 2004Q1

REPORT INFORMATION
  Report Type: 
  Country: None (occurrence: None)
  Receive Date: 20040108
  Receipt Date: 20040108
  Transmission Date: 20041129
  Serious: Yes (Life-Threatening, Hospitalization, Disabling)
  Sender: FDA-Public Use
  Company Number: None

PATIENT
  Age: 37 Year
  Sex: Male
  Weight: 127.0072 kg

DRUGS (7)
  1. ADVAIR DISKUS 100/50 [Suspect]
     Indication: ASTHMA
     Dosage: 1 PUFF BID RESPIRATORY
     Route: 055
     Dates: start: 20030102, end: 20031214
  2. NORVASC [Concomitant]
  3. COZAAR [Concomitant]
  4. SINGULAIR [Concomitant]
  5. BUMEX [Concomitant]
  6. ALLEGRA [Concomitant]
  7. FLOVENT [Concomitant]

REACTIONS (4)
  - APNOEA [None]
  - COUGH [None]
  - LOSS OF CONSCIOUSNESS [None]
  - ROAD TRAFFIC ACCIDENT [None]
